FAERS Safety Report 24391921 (Version 2)
Quarter: 2025Q1

REPORT INFORMATION
  Report Type: Other
  Country: JP (occurrence: JP)
  Receive Date: 20241003
  Receipt Date: 20250122
  Transmission Date: 20250408
  Serious: Yes (Hospitalization)
  Sender: B BRAUN
  Company Number: JP-B.Braun Medical Inc.-2162261

PATIENT
  Age: 52 Year
  Sex: Male

DRUGS (1)
  1. HEPARIN SODIUM IN DEXTROSE [Suspect]
     Active Substance: HEPARIN SODIUM
     Indication: Aortic thrombosis

REACTIONS (1)
  - Drug ineffective [Unknown]
